FAERS Safety Report 8321121-7 (Version None)
Quarter: 2012Q2

REPORT INFORMATION
  Report Type: 
  Country: None (occurrence: None)
  Receive Date: 20120426
  Receipt Date: 20120403
  Transmission Date: 20120825
  Serious: Yes (Hospitalization, Other)
  Sender: FDA-Public Use
  Company Number: 2012P1015515

PATIENT
  Age: 45 Year
  Sex: Female

DRUGS (1)
  1. DIGOXIN [Suspect]

REACTIONS (14)
  - TOXICITY TO VARIOUS AGENTS [None]
  - ATRIOVENTRICULAR BLOCK COMPLETE [None]
  - ARRHYTHMIA [None]
  - ATRIOVENTRICULAR BLOCK SECOND DEGREE [None]
  - INTENTIONAL OVERDOSE [None]
  - PSYCHOMOTOR RETARDATION [None]
  - NAUSEA [None]
  - ATRIOVENTRICULAR BLOCK FIRST DEGREE [None]
  - SUPRAVENTRICULAR EXTRASYSTOLES [None]
  - VOMITING [None]
  - SUICIDE ATTEMPT [None]
  - VENTRICULAR EXTRASYSTOLES [None]
  - HEADACHE [None]
  - DIZZINESS [None]
